FAERS Safety Report 10706379 (Version 2)
Quarter: 2015Q2

REPORT INFORMATION
  Report Type: Spontaneous
  Country: CA (occurrence: CA)
  Receive Date: 20150113
  Receipt Date: 20150414
  Transmission Date: 20150821
  Serious: Yes (Other)
  Sender: FDA-Public Use
  Company Number: CA-ROCHE-1519854

PATIENT
  Age: 58 Year
  Sex: Female

DRUGS (2)
  1. XOLAIR [Suspect]
     Active Substance: OMALIZUMAB
     Route: 058
     Dates: start: 20150107
  2. XOLAIR [Suspect]
     Active Substance: OMALIZUMAB
     Indication: ASTHMA
     Route: 058
     Dates: start: 20140725

REACTIONS (6)
  - Pneumonia [Recovering/Resolving]
  - Heart rate increased [Unknown]
  - Blood pressure increased [Unknown]
  - Obstructive airways disorder [Unknown]
  - Body temperature decreased [Unknown]
  - Wheezing [Unknown]

NARRATIVE: CASE EVENT DATE: 20140821
